FAERS Safety Report 8601393-1 (Version None)
Quarter: 2012Q3

REPORT INFORMATION
  Report Type: 
  Country: None (occurrence: None)
  Receive Date: 20120817
  Receipt Date: 20120813
  Transmission Date: 20120928
  Serious: Yes (Death, Other)
  Sender: FDA-Public Use
  Company Number: FR-PFIZER INC-2012162457

PATIENT
  Age: 47 Year
  Sex: Female

DRUGS (3)
  1. LAMICTAL [Concomitant]
     Indication: EPILEPSY
     Dosage: 25 MG, 1X/DAY
     Route: 048
  2. NEXIUM [Concomitant]
     Indication: ABDOMINAL PAIN UPPER
     Dosage: 40 MG, 1X/DAY
     Route: 048
  3. CRIZOTINIB [Suspect]
     Indication: LUNG ADENOCARCINOMA
     Dosage: 250 MG, 2X/DAY
     Route: 048
     Dates: start: 20120301, end: 20120613

REACTIONS (5)
  - ALANINE AMINOTRANSFERASE INCREASED [None]
  - PHOTOPSIA [None]
  - PLEURAL EFFUSION [None]
  - LUNG ADENOCARCINOMA [None]
  - DISEASE PROGRESSION [None]
